FAERS Safety Report 5594082-1 (Version None)
Quarter: 2008Q1

REPORT INFORMATION
  Report Type: 
  Country: None (occurrence: None)
  Receive Date: 20080116
  Receipt Date: 20080108
  Transmission Date: 20080703
  Serious: Yes (Hospitalization, Other)
  Sender: FDA-Public Use
  Company Number: NL-PFIZER INC-2008001296

PATIENT
  Age: 56 Year
  Sex: Male
  Weight: 122 kg

DRUGS (4)
  1. GENOTROPIN [Suspect]
     Indication: GROWTH HORMONE DEFICIENCY
     Route: 058
     Dates: start: 20060928, end: 20071021
  2. FLIXONASE [Concomitant]
     Dosage: TEXT:ONCE DAILY
  3. PANTOPRAZOLE SODIUM [Concomitant]
  4. LIPITOR [Concomitant]

REACTIONS (1)
  - TRANSITIONAL CELL CARCINOMA [None]
